FAERS Safety Report 10743857 (Version 2)
Quarter: 2016Q1

REPORT INFORMATION
  Report Type: Spontaneous
  Country: CA (occurrence: CA)
  Receive Date: 20150128
  Receipt Date: 20160229
  Transmission Date: 20160525
  Serious: Yes (Hospitalization)
  Sender: FDA-Public Use
  Company Number: CA-ROCHE-1525568

PATIENT
  Age: 42 Year
  Sex: Male

DRUGS (6)
  1. NAPROXEN SODIUM. [Suspect]
     Active Substance: NAPROXEN SODIUM
     Indication: INTENTIONAL OVERDOSE
     Route: 048
  2. CODEINE [Suspect]
     Active Substance: CODEINE
     Indication: INTENTIONAL OVERDOSE
     Route: 048
  3. DIPHENHYDRAMINE HYDROCHLORIDE. [Suspect]
     Active Substance: DIPHENHYDRAMINE HYDROCHLORIDE
     Indication: INTENTIONAL OVERDOSE
     Route: 048
  4. XARELTO [Suspect]
     Active Substance: RIVAROXABAN
     Indication: INTENTIONAL OVERDOSE
     Route: 048
  5. ACETAMINOPHEN. [Suspect]
     Active Substance: ACETAMINOPHEN
     Indication: INTENTIONAL OVERDOSE
     Route: 048
  6. LORAZEPAM. [Suspect]
     Active Substance: LORAZEPAM
     Indication: INTENTIONAL OVERDOSE
     Route: 048

REACTIONS (4)
  - International normalised ratio increased [Recovered/Resolved]
  - Intentional overdose [Unknown]
  - Activated partial thromboplastin time prolonged [Recovered/Resolved]
  - Prothrombin time prolonged [Recovered/Resolved]
